FAERS Safety Report 9770572 (Version 1)
Quarter: 2013Q4

REPORT INFORMATION
  Report Type: Spontaneous
  Country: US (occurrence: US)
  Receive Date: 20131218
  Receipt Date: 20131218
  Transmission Date: 20140711
  Serious: No
  Sender: FDA-Public Use
  Company Number: US-B.I. PHARMACEUTICALS,INC./RIDGEFIELD-2013-BI-40868BP

PATIENT
  Sex: Male

DRUGS (3)
  1. SPIRIVA [Suspect]
     Indication: CHRONIC OBSTRUCTIVE PULMONARY DISEASE
     Dosage: 36 MCG
     Route: 055
     Dates: start: 20131203
  2. TAMSULOSIN [Concomitant]
     Indication: PROSTATIC DISORDER
     Dosage: 0.4 MG
     Route: 048
  3. NICODERM [Concomitant]
     Indication: SMOKING CESSATION THERAPY
     Dosage: FORMULATION: PATCH
     Route: 061

REACTIONS (2)
  - Drug administration error [Not Recovered/Not Resolved]
  - Drug ineffective [Unknown]
